FAERS Safety Report 23421549 (Version 2)
Quarter: 2024Q1

REPORT INFORMATION
  Report Type: Spontaneous
  Country: IT (occurrence: IT)
  Receive Date: 20240119
  Receipt Date: 20240129
  Transmission Date: 20240410
  Serious: Yes (Other)
  Sender: FDA-Public Use
  Company Number: IT-MINISAL02-946102

PATIENT
  Age: 65 Year
  Sex: Male
  Weight: 81 kg

DRUGS (3)
  1. GLICLAZIDE [Suspect]
     Active Substance: GLICLAZIDE
     Indication: Type 2 diabetes mellitus
     Dosage: 60 MG/DAY, THEN START ART WITH INJECTIONS INCREASING DOSAGE TO 90 MG 1 CP/DAY H 8:00
     Route: 048
     Dates: start: 2017
  2. METFORMIN [Suspect]
     Active Substance: METFORMIN HYDROCHLORIDE
     Indication: Type 2 diabetes mellitus
     Dosage: 1000 MG IN THE EVENING, THEN WITH INITIATION OF INJECTIVE ART INCREASE IN DOSAGE TO 3000 MG IN THE E
     Route: 048
     Dates: start: 2016
  3. RILPIVIRINE [Suspect]
     Active Substance: RILPIVIRINE
     Indication: Blood HIV RNA below assay limit
     Dosage: 1 TIME EVERY 2 MONTHS AS PER LONG ACTING INJECTION THERAPY SCHEDULE FOR HIV-INFECTED PATIENTS
     Route: 030
     Dates: start: 20230119, end: 20230626

REACTIONS (1)
  - Diabetes mellitus [Recovered/Resolved]

NARRATIVE: CASE EVENT DATE: 20230119
